FAERS Safety Report 6337900-1 (Version None)
Quarter: 2009Q3

REPORT INFORMATION
  Report Type: 
  Country: None (occurrence: None)
  Receive Date: 20090902
  Receipt Date: 20090827
  Transmission Date: 20100115
  Serious: Yes (Hospitalization, Other)
  Sender: FDA-Public Use
  Company Number: GB-BAXTER-2009BH011851

PATIENT
  Sex: Female

DRUGS (4)
  1. DEXTROSE 5% [Suspect]
     Indication: DRUG USE FOR UNKNOWN INDICATION
     Route: 065
     Dates: start: 20090702
  2. ELOXITAN [Suspect]
     Indication: ADENOCARCINOMA
     Route: 065
     Dates: start: 20090702, end: 20090702
  3. EPIRUBICIN [Suspect]
     Indication: ADENOCARCINOMA
     Route: 042
     Dates: start: 20090702
  4. CAPECITABINE [Concomitant]
     Indication: ADENOCARCINOMA
     Route: 048

REACTIONS (6)
  - C-REACTIVE PROTEIN INCREASED [None]
  - FATIGUE [None]
  - PYREXIA [None]
  - SEPSIS [None]
  - SHOCK [None]
  - VOMITING [None]
